FAERS Safety Report 11502934 (Version 2)
Quarter: 2016Q3

REPORT INFORMATION
  Report Type: Spontaneous
  Country: US (occurrence: US)
  Receive Date: 20150914
  Receipt Date: 20160915
  Transmission Date: 20161109
  Serious: Yes (Hospitalization, Other)
  Sender: FDA-Public Use
  Company Number: US-ASTELLAS-2015US029948

PATIENT
  Age: 52 Year
  Sex: Male

DRUGS (1)
  1. XTANDI [Suspect]
     Active Substance: ENZALUTAMIDE
     Indication: PROSTATE CANCER
     Route: 048
     Dates: start: 201506

REACTIONS (7)
  - Urinary tract infection [Unknown]
  - Neuropathy peripheral [Not Recovered/Not Resolved]
  - Muscle atrophy [Unknown]
  - Kidney infection [Unknown]
  - Sepsis [Unknown]
  - Peroneal nerve palsy [Unknown]
  - Drug dose omission [Unknown]

NARRATIVE: CASE EVENT DATE: 201507
